FAERS Safety Report 21240929 (Version 1)
Quarter: 2022Q3

REPORT INFORMATION
  Report Type: Spontaneous
  Country: US (occurrence: US)
  Receive Date: 20220823
  Receipt Date: 20220823
  Transmission Date: 20221027
  Serious: Yes (Other)
  Sender: FDA-Public Use
  Company Number: US-ENDO PHARMACEUTICALS INC-2022-005001

PATIENT
  Age: 62 Year
  Sex: Female

DRUGS (2)
  1. RANITIDINE HYDROCHLORIDE [Suspect]
     Active Substance: RANITIDINE HYDROCHLORIDE
     Indication: Dyspepsia
     Dosage: UNK UNKNOWN, DAILY
     Route: 065
     Dates: start: 200006, end: 201806
  2. ZANTAC [Suspect]
     Active Substance: RANITIDINE HYDROCHLORIDE
     Indication: Dyspepsia
     Dosage: UNK UNKNOWN, DAILY
     Route: 065
     Dates: start: 200006, end: 201806

REACTIONS (2)
  - Lung carcinoma cell type unspecified stage IV [Recovering/Resolving]
  - Gastric cancer [Unknown]

NARRATIVE: CASE EVENT DATE: 20171201
